FAERS Safety Report 5217150-2 (Version None)
Quarter: 2007Q1

REPORT INFORMATION
  Report Type: 
  Country: None (occurrence: None)
  Receive Date: 20070123
  Receipt Date: 20070123
  Transmission Date: 20070707
  Serious: Yes (Hospitalization)
  Sender: FDA-Public Use
  Company Number: None

PATIENT
  Age: 58 Year
  Sex: Male
  Weight: 83.9154 kg

DRUGS (1)
  1. BACTRIM DS [Suspect]
     Indication: INFECTION
     Dosage: PO BID
     Route: 048
     Dates: start: 20061031, end: 20061102

REACTIONS (1)
  - ANGIOEDEMA [None]
